FAERS Safety Report 5958848-8 (Version None)
Quarter: 2008Q4

REPORT INFORMATION
  Report Type: 
  Country: None (occurrence: None)
  Receive Date: 20081119
  Receipt Date: 20081106
  Transmission Date: 20090506
  Serious: Yes (Other)
  Sender: FDA-Public Use
  Company Number: CA-AMGEN-KDL305013

PATIENT
  Sex: Male

DRUGS (12)
  1. ENBREL [Suspect]
     Indication: ANKYLOSING SPONDYLITIS
     Route: 058
     Dates: start: 20080201, end: 20080901
  2. AMIODARONE HCL [Concomitant]
  3. METOPROLOL TARTRATE [Concomitant]
  4. ENALAPRIL MALEATE [Concomitant]
  5. VALSARTAN [Concomitant]
  6. FUROSEMIDE [Concomitant]
  7. ROSUVASTATIN [Concomitant]
  8. CLOPIDOGREL [Concomitant]
  9. CELEXA [Concomitant]
  10. LORAZEPAM [Concomitant]
  11. SLOW-K [Concomitant]
  12. MULTI-VITAMINS [Concomitant]

REACTIONS (4)
  - ARRHYTHMIA [None]
  - EJECTION FRACTION DECREASED [None]
  - MYOCARDIAL INFARCTION [None]
  - SYNCOPE [None]
